FAERS Safety Report 23092213 (Version 1)
Quarter: 2023Q4

REPORT INFORMATION
  Report Type: Spontaneous
  Country: US (occurrence: US)
  Receive Date: 20231021
  Receipt Date: 20231021
  Transmission Date: 20240110
  Serious: No
  Sender: FDA-Public Use
  Company Number: US-OPELLA-2023OHG007842

PATIENT
  Sex: Female

DRUGS (2)
  1. HYDROCORTISONE 1% [Suspect]
     Active Substance: HYDROCORTISONE ACETATE
     Indication: Wound
     Route: 065
  2. HYDROCORTISONE 1% [Suspect]
     Active Substance: HYDROCORTISONE ACETATE
     Indication: Bite

REACTIONS (2)
  - Drug effective for unapproved indication [Unknown]
  - No adverse event [Unknown]
